FAERS Safety Report 25117640 (Version 1)
Quarter: 2025Q1

REPORT INFORMATION
  Report Type: Spontaneous
  Country: GE (occurrence: GE)
  Receive Date: 20250325
  Receipt Date: 20250325
  Transmission Date: 20250409
  Serious: Yes (Other)
  Sender: RANBAXY
  Company Number: GE-SUN PHARMACEUTICAL INDUSTRIES LTD-2025R1-500321

PATIENT
  Age: 33 Year
  Sex: Male

DRUGS (2)
  1. FOLIC ACID [Suspect]
     Active Substance: FOLIC ACID
     Indication: Crohn^s disease
     Route: 065
  2. METHOTREXATE [Suspect]
     Active Substance: METHOTREXATE
     Indication: Crohn^s disease
     Route: 065

REACTIONS (5)
  - HIV infection [Unknown]
  - Pancytopenia [Unknown]
  - Renal failure [Unknown]
  - Toxicity to various agents [Unknown]
  - Abdominal discomfort [Unknown]
